FAERS Safety Report 5037373-5 (Version None)
Quarter: 2006Q2

REPORT INFORMATION
  Report Type: 
  Country: None (occurrence: None)
  Receive Date: 20060628
  Receipt Date: 20060621
  Transmission Date: 20061013
  Serious: No
  Sender: FDA-Public Use
  Company Number: GB-JNJFOC-20060602567

PATIENT
  Sex: Male

DRUGS (3)
  1. RISPERDAL CONSTA [Suspect]
     Indication: DRUG USE FOR UNKNOWN INDICATION
     Route: 030
  2. CLOMIPRAMINE HCL [Concomitant]
  3. DIAZEPAM [Concomitant]

REACTIONS (1)
  - AGGRESSION [None]
